FAERS Safety Report 15652668 (Version 1)
Quarter: 2018Q4

REPORT INFORMATION
  Report Type: Spontaneous
  Country: US (occurrence: US)
  Receive Date: 20181123
  Receipt Date: 20181123
  Transmission Date: 20190205
  Serious: No
  Sender: FDA-Public Use
  Company Number: US-NOVOPROD-578692

PATIENT
  Age: 61 Year
  Sex: Female

DRUGS (1)
  1. NOVOLOG [Suspect]
     Active Substance: INSULIN ASPART
     Indication: TYPE 1 DIABETES MELLITUS
     Dosage: 9 U, TID
     Route: 058
     Dates: start: 20171202

REACTIONS (9)
  - Swelling [Not Recovered/Not Resolved]
  - Injection site pain [Unknown]
  - Injection site irritation [Unknown]
  - Injection site discomfort [Unknown]
  - Injection site bruising [Unknown]
  - Injection site erythema [Unknown]
  - Abdominal distension [Unknown]
  - Weight increased [Not Recovered/Not Resolved]
  - Injection site pruritus [Unknown]

NARRATIVE: CASE EVENT DATE: 20171203
